FAERS Safety Report 5357699-5 (Version None)
Quarter: 2007Q2

REPORT INFORMATION
  Report Type: 
  Country: None (occurrence: None)
  Receive Date: 20070614
  Receipt Date: 20070605
  Transmission Date: 20071010
  Serious: Yes (Other)
  Sender: FDA-Public Use
  Company Number: IE-SANOFI-SYNTHELABO-A01200706066

PATIENT

DRUGS (1)
  1. ELOXATIN [Suspect]
     Dosage: UNK
     Route: 065

REACTIONS (1)
  - LARYNGOSPASM [None]
